FAERS Safety Report 7811163-X (Version None)
Quarter: 2011Q4

REPORT INFORMATION
  Report Type: 
  Country: None (occurrence: None)
  Receive Date: 20111013
  Receipt Date: 20111010
  Transmission Date: 20120403
  Serious: Yes (Death, Hospitalization, Other)
  Sender: FDA-Public Use
  Company Number: PHHY2011KR50636

PATIENT
  Sex: Male
  Weight: 43 kg

DRUGS (3)
  1. EXJADE [Suspect]
     Indication: ANAEMIA
     Dosage: 1000 MG, DAILY
     Route: 048
     Dates: start: 20110418, end: 20110622
  2. MUCOPECT [Concomitant]
     Indication: UPPER RESPIRATORY TRACT INFECTION
     Dosage: 45 MG, PER DAY
     Dates: start: 20110606, end: 20110611
  3. EXJADE [Suspect]
     Indication: MYELOFIBROSIS

REACTIONS (6)
  - NEOPLASM PROGRESSION [None]
  - PYREXIA [None]
  - OEDEMA PERIPHERAL [None]
  - GENERAL PHYSICAL HEALTH DETERIORATION [None]
  - CELLULITIS [None]
  - NEOPLASM MALIGNANT [None]
